FAERS Safety Report 17932396 (Version 5)
Quarter: 2020Q3

REPORT INFORMATION
  Report Type: Spontaneous
  Country: GB (occurrence: GB)
  Receive Date: 20200623
  Receipt Date: 20200822
  Transmission Date: 20201103
  Serious: Yes (Death)
  Sender: FDA-Public Use
  Company Number: NVSC2020GB174180

PATIENT
  Age: 54 Year
  Sex: Male
  Weight: 123 kg

DRUGS (5)
  1. LONGTEC [Concomitant]
     Active Substance: OXYCODONE HYDROCHLORIDE
     Indication: RHEUMATOID ARTHRITIS
     Dosage: 60 MG, BID (60 MG, 2X/DAY)
     Route: 065
     Dates: start: 201403
  2. METHOTREXATE SODIUM. [Suspect]
     Active Substance: METHOTREXATE SODIUM
     Indication: RHEUMATOID ARTHRITIS
     Dosage: 15 MG, QW (15 MG, WEEKLY)
     Route: 048
     Dates: start: 201407
  3. TOFACITINIB CITRATE [Suspect]
     Active Substance: TOFACITINIB CITRATE
     Indication: RHEUMATOID ARTHRITIS
     Dosage: 10 MG, QD (5 MG, 2X/DAY)
     Route: 048
     Dates: start: 20160919, end: 20180917
  4. TOFACITINIB CITRATE [Suspect]
     Active Substance: TOFACITINIB CITRATE
     Dosage: 10 MG, QD (5 MG, 2X/DAY)
     Route: 048
     Dates: start: 20180918
  5. AMLODIPINE [Concomitant]
     Active Substance: AMLODIPINE BESYLATE
     Indication: HYPERTENSION
     Dosage: 5 MG, QD (5 MG, DAILY)
     Route: 048
     Dates: start: 201602

REACTIONS (4)
  - Coronavirus infection [Fatal]
  - COVID-19 pneumonia [Fatal]
  - SARS-CoV-2 test positive [Fatal]
  - Pneumonia viral [Fatal]
